FAERS Safety Report 16196221 (Version 2)
Quarter: 2019Q2

REPORT INFORMATION
  Report Type: Spontaneous
  Country: ES (occurrence: ES)
  Receive Date: 20190415
  Receipt Date: 20190503
  Transmission Date: 20190711
  Serious: Yes (Death, Other)
  Sender: FDA-Public Use
  Company Number: ES-AUROBINDO-AUR-APL-2019-019387

PATIENT

DRUGS (6)
  1. FLUOROURACIL. [Interacting]
     Active Substance: FLUOROURACIL
     Indication: RECTAL CANCER
     Dosage: UNK
     Route: 065
     Dates: start: 20160914
  2. OXALIPLATIN. [Suspect]
     Active Substance: OXALIPLATIN
     Indication: RECTAL NEOPLASM
     Dosage: UNK
     Route: 065
  3. CALCIUM FOLINATE [Suspect]
     Active Substance: LEUCOVORIN CALCIUM
     Indication: RECTAL NEOPLASM
     Dosage: UNK
     Route: 065
  4. FOLINIC ACID [Concomitant]
     Active Substance: LEUCOVORIN
     Indication: PRODUCT USED FOR UNKNOWN INDICATION
     Dosage: UNK
     Route: 065
  5. PANITUMUMAB [Suspect]
     Active Substance: PANITUMUMAB
     Indication: RECTAL NEOPLASM
     Dosage: UNK
     Route: 065
  6. BRIVUDINE [Interacting]
     Active Substance: BRIVUDINE
     Indication: FOLLICULITIS
     Dosage: 125 MILLIGRAM, ONCE A DAY
     Route: 048
     Dates: start: 20170118, end: 20170124

REACTIONS (6)
  - Mucosal inflammation [Fatal]
  - Labelled drug-drug interaction medication error [Recovered/Resolved]
  - Unintentional use for unapproved indication [Recovered/Resolved]
  - Folliculitis [Unknown]
  - Multiple organ dysfunction syndrome [Fatal]
  - Pancytopenia [Fatal]

NARRATIVE: CASE EVENT DATE: 20170118
